FAERS Safety Report 22332288 (Version 6)
Quarter: 2023Q4

REPORT INFORMATION
  Report Type: Report from Study
  Country: MX (occurrence: MX)
  Receive Date: 20230517
  Receipt Date: 20231027
  Transmission Date: 20240109
  Serious: Yes (Other)
  Sender: FDA-Public Use
  Company Number: MX-002147023-NVSC2023MX106702

PATIENT
  Sex: Female
  Weight: 82 kg

DRUGS (2)
  1. TASIGNA [Suspect]
     Active Substance: NILOTINIB
     Indication: Chronic myeloid leukaemia
     Dosage: UNK
     Route: 048
     Dates: start: 202111
  2. TASIGNA [Suspect]
     Active Substance: NILOTINIB
     Dosage: UNK (STOP DATE: ONGOING)
     Route: 048

REACTIONS (24)
  - Sick cell syndrome [Unknown]
  - Thrombosis [Unknown]
  - COVID-19 [Unknown]
  - Gastritis [Unknown]
  - Gait inability [Unknown]
  - Abdominal pain upper [Unknown]
  - Synovial cyst [Unknown]
  - Varices oesophageal [Unknown]
  - Pain in extremity [Unknown]
  - Groin pain [Unknown]
  - Bone pain [Unknown]
  - Dyspepsia [Unknown]
  - Abdominal discomfort [Unknown]
  - Constipation [Unknown]
  - Chills [Unknown]
  - Taste disorder [Unknown]
  - Decreased appetite [Unknown]
  - Fluid retention [Unknown]
  - Negative thoughts [Unknown]
  - Limb discomfort [Unknown]
  - Distractibility [Unknown]
  - Fatigue [Unknown]
  - Anxiety [Unknown]
  - Drug ineffective [Unknown]
